FAERS Safety Report 8475027-3 (Version None)
Quarter: 2012Q2

REPORT INFORMATION
  Report Type: 
  Country: None (occurrence: None)
  Receive Date: 20120622
  Receipt Date: 20120613
  Transmission Date: 20120825
  Serious: Yes (Hospitalization)
  Sender: FDA-Public Use
  Company Number: 2012HGS-003747

PATIENT
  Sex: Female
  Weight: 70 kg

DRUGS (1)
  1. BENLYSTA [Suspect]
     Indication: SYSTEMIC LUPUS ERYTHEMATOSUS
     Dosage: INTRAVENOUS DRIP
     Route: 041
     Dates: start: 20111219

REACTIONS (5)
  - PERIPHERAL VASCULAR DISORDER [None]
  - FATIGUE [None]
  - PRURITUS [None]
  - NAUSEA [None]
  - DIZZINESS [None]
